FAERS Safety Report 23192156 (Version 1)
Quarter: 2023Q4

REPORT INFORMATION
  Report Type: Spontaneous
  Country: US (occurrence: None)
  Receive Date: 20231116
  Receipt Date: 20231116
  Transmission Date: 20240110
  Serious: Yes (Hospitalization)
  Sender: FDA-Public Use
  Company Number: None

PATIENT
  Sex: Female

DRUGS (22)
  1. SOLU-CORTEF [Suspect]
     Active Substance: HYDROCORTISONE SODIUM SUCCINATE
     Indication: Adrenocortical insufficiency acute
     Dosage: FREQUENCY : EVERY 12 HOURS;?OTHER ROUTE : JEJUNOSTOMY TUBE;?
     Route: 050
     Dates: start: 20201014
  2. ALBUTEROL AER HFA [Concomitant]
  3. ATORVASTATIN [Concomitant]
  4. AZELASTINE [Concomitant]
     Active Substance: AZELASTINE\AZELASTINE HYDROCHLORIDE
  5. AZITHROMYCIN [Concomitant]
     Active Substance: AZITHROMYCIN
  6. BUDESONIDE [Concomitant]
     Active Substance: BUDESONIDE
  7. COMBIVENT [Concomitant]
     Active Substance: ALBUTEROL SULFATE\IPRATROPIUM BROMIDE
  8. CYANOCOBALAMIN [Concomitant]
     Active Substance: CYANOCOBALAMIN
  9. DEXAMETHASONE [Concomitant]
     Active Substance: DEXAMETHASONE
  10. ENOXAPARIN [Concomitant]
     Active Substance: ENOXAPARIN
  11. FAMOTIDINE [Concomitant]
     Active Substance: FAMOTIDINE
  12. FLUDROCORTISONE [Concomitant]
     Active Substance: FLUDROCORTISONE
  13. FLUTICASONE [Concomitant]
     Active Substance: FLUTICASONE
  14. FUROSEMIDE [Concomitant]
     Active Substance: FUROSEMIDE
  15. IBUPROFEN [Concomitant]
     Active Substance: IBUPROFEN
  16. IPRATROPIUM [Concomitant]
     Active Substance: IPRATROPIUM
  17. LEVALBUTEROL [Concomitant]
  18. ONDANSETRON [Concomitant]
     Active Substance: ONDANSETRON
  19. PREDNISONE [Concomitant]
     Active Substance: PREDNISONE
  20. SUCRALFATE [Concomitant]
     Active Substance: SUCRALFATE
  21. SYMBICORT [Concomitant]
     Active Substance: BUDESONIDE\FORMOTEROL FUMARATE DIHYDRATE
  22. VITAMIN D [Concomitant]
     Active Substance: VITAMIN D NOS

REACTIONS (2)
  - Complication associated with device [None]
  - Product dose omission in error [None]
